FAERS Safety Report 6898760-3 (Version None)
Quarter: 2010Q3

REPORT INFORMATION
  Report Type: 
  Country: None (occurrence: None)
  Receive Date: 20100802
  Receipt Date: 20071121
  Transmission Date: 20110219
  Serious: Yes (Other)
  Sender: FDA-Public Use
  Company Number: US-PFIZER INC-2007081212

PATIENT
  Sex: Male
  Weight: 113.4 kg

DRUGS (2)
  1. LYRICA [Suspect]
     Indication: PREOPERATIVE CARE
     Dates: start: 20070710, end: 20070715
  2. LYRICA [Suspect]
     Indication: POSTOPERATIVE CARE

REACTIONS (17)
  - ACTIVITIES OF DAILY LIVING IMPAIRED [None]
  - ARTHRALGIA [None]
  - ASTHENIA [None]
  - C-REACTIVE PROTEIN INCREASED [None]
  - CARTILAGE INJURY [None]
  - FATIGUE [None]
  - HEADACHE [None]
  - JOINT EFFUSION [None]
  - MENISCUS LESION [None]
  - MYALGIA [None]
  - OEDEMA PERIPHERAL [None]
  - OSTEOARTHRITIS [None]
  - PAIN [None]
  - PARAESTHESIA [None]
  - SYNOVIAL CYST [None]
  - SYNOVIAL FLUID WHITE BLOOD CELLS POSITIVE [None]
  - TENDONITIS [None]
